FAERS Safety Report 17939829 (Version 2)
Quarter: 2020Q2

REPORT INFORMATION
  Report Type: Report from Study
  Country: DE (occurrence: DE)
  Receive Date: 20200624
  Receipt Date: 20200629
  Transmission Date: 20200714
  Serious: Yes (Other)
  Sender: FDA-Public Use
  Company Number: DE-PFIZER INC-2020240850

PATIENT
  Sex: Male

DRUGS (1)
  1. SOMATROPIN. [Suspect]
     Active Substance: SOMATROPIN
     Indication: PRADER-WILLI SYNDROME
     Dosage: UNK
     Route: 058
     Dates: start: 20071004

REACTIONS (7)
  - Hypopnoea [Recovered/Resolved]
  - Gastrointestinal infection [Recovered/Resolved]
  - Tonsillar hypertrophy [Recovered/Resolved]
  - Autism spectrum disorder [Not Recovered/Not Resolved]
  - Viral infection [Recovered/Resolved]
  - Infantile apnoea [Recovered/Resolved]
  - Sleep apnoea syndrome [Recovered/Resolved]

NARRATIVE: CASE EVENT DATE: 200710
